FAERS Safety Report 21337916 (Version 4)
Quarter: 2022Q4

REPORT INFORMATION
  Report Type: Report from Study
  Country: US (occurrence: None)
  Receive Date: 20220915
  Receipt Date: 20221115
  Transmission Date: 20230112
  Serious: Yes (Hospitalization)
  Sender: FDA-Public Use
  Company Number: US-Merck Healthcare KGaA-9350224

PATIENT
  Age: 33 Year
  Sex: Male
  Weight: 77 kg

DRUGS (4)
  1. MAVENCLAD [Suspect]
     Active Substance: CLADRIBINE
     Indication: Multiple sclerosis
     Dosage: YEAR ONE MONTH ONE THERAPY
     Route: 048
     Dates: start: 20210820, end: 20210824
  2. MAVENCLAD [Suspect]
     Active Substance: CLADRIBINE
     Dosage: YEAR ONE MONTH TWO THERAPY
     Route: 048
     Dates: start: 20210923, end: 20210927
  3. MAVENCLAD [Suspect]
     Active Substance: CLADRIBINE
     Dosage: YEAR TWO MONTH ONE THERAPY
     Route: 048
     Dates: start: 20220815, end: 20220819
  4. MAVENCLAD [Suspect]
     Active Substance: CLADRIBINE
     Dosage: YEAR TWO MONTH TWO THERAPY DISCONTINUED ON 08 OCT 2022 AS PER SCHEDULE
     Route: 048
     Dates: start: 20221001

REACTIONS (7)
  - Catheter site infection [Unknown]
  - Cellulitis [Recovered/Resolved]
  - Haemorrhoids [Unknown]
  - Haemoglobin decreased [Unknown]
  - Malaise [Unknown]
  - Iron deficiency [Unknown]
  - Lymphocyte count decreased [Unknown]
